FAERS Safety Report 18530963 (Version 1)
Quarter: 2020Q4

REPORT INFORMATION
  Report Type: Spontaneous
  Country: US (occurrence: US)
  Receive Date: 20201121
  Receipt Date: 20201121
  Transmission Date: 20210114
  Serious: No
  Sender: FDA-Public Use
  Company Number: US-009507513-2011USA011245

PATIENT
  Age: 17 Year
  Sex: Female
  Weight: 95.25 kg

DRUGS (2)
  1. NEXPLANON [Suspect]
     Active Substance: ETONOGESTREL
     Dosage: IMPLANT
     Route: 059
     Dates: start: 20201116
  2. NEXPLANON [Suspect]
     Active Substance: ETONOGESTREL
     Dosage: ROD, LEFT ARM
     Route: 059
     Dates: start: 20201116, end: 20201116

REACTIONS (3)
  - Complication of device insertion [Recovered/Resolved]
  - Product quality issue [Unknown]
  - No adverse event [Unknown]

NARRATIVE: CASE EVENT DATE: 20201116
